FAERS Safety Report 17761307 (Version 2)
Quarter: 2020Q2

REPORT INFORMATION
  Report Type: Spontaneous
  Country: US (occurrence: US)
  Receive Date: 20200508
  Receipt Date: 20200513
  Transmission Date: 20200714
  Serious: No
  Sender: FDA-Public Use
  Company Number: US-TEVA-2020-US-1232822

PATIENT
  Sex: Male

DRUGS (4)
  1. ACTAVIS 1 MG CLONAZEPAM [Suspect]
     Active Substance: CLONAZEPAM
     Indication: DYSPHEMIA
     Route: 065
     Dates: start: 2018
  2. ACTAVIS 2 MG ALPRAZOLAM [Suspect]
     Active Substance: ALPRAZOLAM
     Indication: DYSPHEMIA
     Route: 065
     Dates: end: 2014
  3. ACTAVIS 1 MG CLONAZEPAM [Suspect]
     Active Substance: CLONAZEPAM
     Indication: ANXIETY
  4. ACTAVIS 2 MG ALPRAZOLAM [Suspect]
     Active Substance: ALPRAZOLAM
     Indication: ANXIETY
     Route: 065
     Dates: start: 2014

REACTIONS (3)
  - Dysgeusia [Unknown]
  - Off label use [Unknown]
  - Wrong technique in product usage process [Unknown]

NARRATIVE: CASE EVENT DATE: 2014
